FAERS Safety Report 19610273 (Version 1)
Quarter: 2021Q3

REPORT INFORMATION
  Report Type: Other
  Country: US (occurrence: US)
  Receive Date: 20210726
  Receipt Date: 20210726
  Transmission Date: 20211014
  Serious: Yes (Death)
  Sender: FDA-Public Use
  Company Number: US-ROCHE-2656820

PATIENT
  Sex: Male

DRUGS (26)
  1. SINGULAIR [Concomitant]
     Active Substance: MONTELUKAST SODIUM
     Dosage: 10 MG BY MOUTH
     Route: 048
  2. CRESTOR [Concomitant]
     Active Substance: ROSUVASTATIN CALCIUM
     Dosage: 20 MG TAB BY MOUTH
     Route: 048
  3. ZYRTEC (UNITED STATES) [Concomitant]
     Dosage: 10 MG BY MOUTH
     Route: 048
  4. SYNTHROID [Concomitant]
     Active Substance: LEVOTHYROXINE SODIUM
     Dosage: 75 MCG BY MOUTH
     Route: 048
  5. DITROPAN XL [Concomitant]
     Active Substance: OXYBUTYNIN CHLORIDE
     Dosage: 10 MG BY MOUTH
     Route: 048
  6. PREDNISONE. [Concomitant]
     Active Substance: PREDNISONE
     Dosage: 3 TAB DAILY FOR 1 WEEK
  7. HYTRIN [Concomitant]
     Active Substance: TERAZOSIN HYDROCHLORIDE
     Dosage: 5 MG CAPSULE BY MOUTH
     Route: 048
  8. ASPIRIN. [Concomitant]
     Active Substance: ASPIRIN
     Dosage: 81 MG BY MOUTH
     Route: 048
  9. MAGNESIUM CHLORIDE. [Concomitant]
     Active Substance: MAGNESIUM CHLORIDE
     Dosage: 64 MG BY MOUTH
     Route: 048
  10. PREDNISONE. [Concomitant]
     Active Substance: PREDNISONE
     Dosage: 5 MG 1 TAB BY MOUTH
     Route: 048
  11. PROSCAR [Concomitant]
     Active Substance: FINASTERIDE
     Dosage: 5 MG BY MOUTH
     Route: 048
  12. LASIX [Concomitant]
     Active Substance: FUROSEMIDE
     Dosage: 20 MG TABLET BY MOUTH
     Route: 048
  13. PREDNISONE. [Concomitant]
     Active Substance: PREDNISONE
     Dosage: 3 TAB DAILY FOR 1 WEEK
  14. CELLCEPT [Suspect]
     Active Substance: MYCOPHENOLATE MOFETIL\MYCOPHENOLATE MOFETIL HYDROCHLORIDE
     Indication: INTERSTITIAL LUNG DISEASE
  15. PREDNISONE. [Concomitant]
     Active Substance: PREDNISONE
     Dosage: 2.5 TAB DAILY FOR 1 WEEK
  16. CELLCEPT [Suspect]
     Active Substance: MYCOPHENOLATE MOFETIL\MYCOPHENOLATE MOFETIL HYDROCHLORIDE
     Indication: HYPERSENSITIVITY PNEUMONITIS
     Dosage: 2 TABLETS BID
     Route: 048
  17. PREDNISONE. [Concomitant]
     Active Substance: PREDNISONE
     Dosage: 0.5 TAB DAILY FOR 1 WEEK
  18. PREDNISONE. [Concomitant]
     Active Substance: PREDNISONE
     Dosage: 10 MG 3 TAB BY MOUTH
     Route: 048
  19. BACTRIM DS [Concomitant]
     Active Substance: SULFAMETHOXAZOLE\TRIMETHOPRIM
     Dosage: 160 ? 800 MG PER TAB, , 3 TIMES A WEEK
     Route: 048
  20. POTASSIUM CHLORIDE EXTENDED RELEASE [Concomitant]
     Active Substance: POTASSIUM CHLORIDE
     Dosage: 10 MEQ BY MOUTH
     Route: 048
  21. PREDNISONE. [Concomitant]
     Active Substance: PREDNISONE
     Dosage: 1.5 TAB DAILY FOR 1 WEEK
  22. PREDNISONE. [Concomitant]
     Active Substance: PREDNISONE
     Dosage: 1 TAB DAILY FOR 1 WEEK
  23. IMDUR [Concomitant]
     Active Substance: ISOSORBIDE MONONITRATE
     Dosage: 60 MG BY MOUTH
     Route: 048
  24. TOPROL XL [Concomitant]
     Active Substance: METOPROLOL SUCCINATE
     Dosage: 50 MG BY MOUTH
     Route: 048
  25. VESICARE [Concomitant]
     Active Substance: SOLIFENACIN SUCCINATE
     Dosage: 5 MG TAB BY MOUTH
     Route: 048
  26. VITAMIN D3 [Concomitant]
     Active Substance: CHOLECALCIFEROL
     Dosage: 1000 UNIT , TAKE 1 TAB BY MOUTH
     Route: 048

REACTIONS (2)
  - Death [Fatal]
  - Off label use [Unknown]
